FAERS Safety Report 16549629 (Version 2)
Quarter: 2019Q3

REPORT INFORMATION
  Report Type: Report from Study
  Country: US (occurrence: US)
  Receive Date: 20190710
  Receipt Date: 20190726
  Transmission Date: 20191004
  Serious: Yes (Other)
  Sender: FDA-Public Use
  Company Number: US-JNJFOC-20190421489

PATIENT
  Age: 83 Year
  Sex: Female

DRUGS (25)
  1. FAMOTIDINE. [Concomitant]
     Active Substance: FAMOTIDINE
  2. CRANBERRY. [Concomitant]
     Active Substance: CRANBERRY
  3. LOSARTAN POTASSIUM. [Concomitant]
     Active Substance: LOSARTAN POTASSIUM
  4. IMBRUVICA [Suspect]
     Active Substance: IBRUTINIB
     Dosage: 420 MG, QD
     Route: 048
     Dates: start: 20190206
  5. POTASSIUM CHLORIDE. [Concomitant]
     Active Substance: POTASSIUM CHLORIDE
  6. FLONASE [Concomitant]
     Active Substance: FLUTICASONE PROPIONATE
  7. LASIX [Concomitant]
     Active Substance: FUROSEMIDE
  8. TACROLIMUS. [Concomitant]
     Active Substance: TACROLIMUS
  9. IMBRUVICA [Suspect]
     Active Substance: IBRUTINIB
     Dosage: 420 MG, QD
     Route: 048
     Dates: start: 20190207
  10. ZINC GLUCONATE [Concomitant]
     Active Substance: ZINC GLUCONATE
  11. COZAAR [Concomitant]
     Active Substance: LOSARTAN POTASSIUM
  12. ELIQUIS [Concomitant]
     Active Substance: APIXABAN
  13. VITAMIN C [Concomitant]
     Active Substance: ASCORBIC ACID
  14. BIOTIN [Concomitant]
     Active Substance: BIOTIN
     Dosage: 5000 UNK
  15. DESONIDE. [Concomitant]
     Active Substance: DESONIDE
  16. DRISDOL [Concomitant]
     Active Substance: ERGOCALCIFEROL
  17. METOPROLOL TARTRATE. [Concomitant]
     Active Substance: METOPROLOL TARTRATE
  18. TURMERIC                           /01079601/ [Concomitant]
     Active Substance: HERBALS\TURMERIC
  19. ULTRAM [Concomitant]
     Active Substance: TRAMADOL HYDROCHLORIDE
  20. IMBRUVICA [Suspect]
     Active Substance: IBRUTINIB
     Indication: CHRONIC LYMPHOCYTIC LEUKAEMIA
     Dosage: UNK
     Route: 065
     Dates: start: 20190129
  21. CYANOCOBALAMIN. [Concomitant]
     Active Substance: CYANOCOBALAMIN
  22. MELATONIN [Concomitant]
     Active Substance: MELATONIN
  23. MULTIVITAMINS [Concomitant]
     Active Substance: VITAMINS
  24. MAGNESIUM GLYCINATE [Concomitant]
     Active Substance: MAGNESIUM GLYCINATE
  25. WHITE PETROLATUM [Concomitant]
     Active Substance: PETROLATUM

REACTIONS (6)
  - Pleural effusion [Not Recovered/Not Resolved]
  - Contusion [Unknown]
  - Pulmonary oedema [Unknown]
  - Cardiomegaly [Not Recovered/Not Resolved]
  - Dyspnoea [Not Recovered/Not Resolved]
  - Haemorrhagic diathesis [Unknown]

NARRATIVE: CASE EVENT DATE: 20190418
